FAERS Safety Report 16339873 (Version 2)
Quarter: 2019Q2

REPORT INFORMATION
  Report Type: Spontaneous
  Country: US (occurrence: US)
  Receive Date: 20190521
  Receipt Date: 20190523
  Transmission Date: 20190711
  Serious: Yes (Other)
  Sender: FDA-Public Use
  Company Number: US-009507513-1905USA008033

PATIENT

DRUGS (1)
  1. BRIDION [Suspect]
     Active Substance: SUGAMMADEX
     Indication: SURGERY
     Dosage: STRENGTH: 100 MG/ML; DOSE/FREQUENCY: 8 MG/KG ADMINISTERED OVER 10 MINUTES

REACTIONS (2)
  - Asthenia [Recovered/Resolved]
  - Incorrect dose administered [Unknown]
